FAERS Safety Report 11564681 (Version 1)
Quarter: 2015Q3

REPORT INFORMATION
  Report Type: Spontaneous
  Country: US (occurrence: US)
  Receive Date: 20150916
  Receipt Date: 20150916
  Transmission Date: 20151125
  Serious: Yes (Hospitalization, Other)
  Sender: FDA-Public Use
  Company Number: US-ELI_LILLY_AND_COMPANY-US200903006784

PATIENT
  Age: 87 Year
  Sex: Female

DRUGS (7)
  1. TEKTURNA /01763601/ [Concomitant]
  2. PROTONIX [Concomitant]
     Active Substance: PANTOPRAZOLE SODIUM
  3. FORTEO [Suspect]
     Active Substance: TERIPARATIDE
     Indication: OSTEOPOROSIS
     Dosage: UNK, UNK
     Dates: start: 200802, end: 20090320
  4. BABY ASPIRIN [Concomitant]
     Active Substance: ASPIRIN
  5. FORTEO [Suspect]
     Active Substance: TERIPARATIDE
     Dates: start: 20090325
  6. CELEBREX [Concomitant]
     Active Substance: CELECOXIB
  7. TOPROL XL [Concomitant]
     Active Substance: METOPROLOL SUCCINATE

REACTIONS (1)
  - Syncope [Recovered/Resolved]

NARRATIVE: CASE EVENT DATE: 20090320
